FAERS Safety Report 11489440 (Version 1)
Quarter: 2015Q3

REPORT INFORMATION
  Report Type: Spontaneous
  Country: US (occurrence: US)
  Receive Date: 20150910
  Receipt Date: 20150910
  Transmission Date: 20151125
  Serious: No
  Sender: FDA-Public Use
  Company Number: US-ROCHE-1481749

PATIENT
  Sex: Male

DRUGS (5)
  1. SOVALDI [Suspect]
     Active Substance: SOFOSBUVIR
     Indication: CHRONIC HEPATITIS C
     Route: 065
     Dates: start: 20141024
  2. PEGASYS [Suspect]
     Active Substance: PEGINTERFERON ALFA-2A
     Indication: CHRONIC HEPATITIS C
     Route: 058
     Dates: start: 20141024
  3. REBETOL [Suspect]
     Active Substance: RIBAVIRIN
     Indication: CHRONIC HEPATITIS C
     Dosage: DIVIDED DOSE
     Route: 048
     Dates: start: 20141024
  4. REBETOL [Suspect]
     Active Substance: RIBAVIRIN
     Route: 065
     Dates: start: 2007
  5. PEGASYS [Suspect]
     Active Substance: PEGINTERFERON ALFA-2A
     Route: 065
     Dates: start: 2007

REACTIONS (8)
  - Influenza like illness [Not Recovered/Not Resolved]
  - Pruritus [Not Recovered/Not Resolved]
  - Rash [Not Recovered/Not Resolved]
  - Nasal congestion [Not Recovered/Not Resolved]
  - Chills [Not Recovered/Not Resolved]
  - Urticaria [Not Recovered/Not Resolved]
  - Fatigue [Not Recovered/Not Resolved]
  - Treatment failure [Unknown]
